FAERS Safety Report 5366951-9 (Version None)
Quarter: 2007Q2

REPORT INFORMATION
  Report Type: 
  Country: None (occurrence: None)
  Receive Date: 20070622
  Receipt Date: 20070109
  Transmission Date: 20071010
  Serious: No
  Sender: FDA-Public Use
  Company Number: US-ASTRAZENECA-2007UW00453

PATIENT
  Age: 61 Year
  Sex: Male
  Weight: 113.4 kg

DRUGS (3)
  1. RHINOCORT [Suspect]
     Route: 045
     Dates: start: 20070101
  2. MOTRIN [Concomitant]
  3. CHOLESTEROL MEDICATION [Concomitant]

REACTIONS (1)
  - INSOMNIA [None]
